FAERS Safety Report 18634446 (Version 2)
Quarter: 2020Q4

REPORT INFORMATION
  Report Type: Report from Study
  Country: US (occurrence: US)
  Receive Date: 20201218
  Receipt Date: 20201222
  Transmission Date: 20210114
  Serious: Yes (Other)
  Sender: FDA-Public Use
  Company Number: US-009507513-2012USA007101

PATIENT
  Age: 26 Year
  Sex: Female
  Weight: 108.84 kg

DRUGS (3)
  1. NEXPLANON [Suspect]
     Active Substance: ETONOGESTREL
     Dosage: 1 IMPLANT
     Route: 059
     Dates: start: 20201127
  2. IMPLANON [Suspect]
     Active Substance: ETONOGESTREL
     Dosage: 1 IMPLANT, IN THE RIGHT ARM
     Route: 059
     Dates: start: 20200730, end: 20201124
  3. NEXPLANON [Suspect]
     Active Substance: ETONOGESTREL
     Dosage: 1 IMPLANT
     Route: 059
     Dates: start: 201707, end: 20200730

REACTIONS (5)
  - Device dislocation [Recovered/Resolved]
  - Animal scratch [Unknown]
  - Implant site vesicles [Unknown]
  - Pain [Unknown]
  - Device expulsion [Recovered/Resolved]

NARRATIVE: CASE EVENT DATE: 20201102
